FAERS Safety Report 17721225 (Version 2)
Quarter: 2020Q2

REPORT INFORMATION
  Report Type: Spontaneous
  Country: CZ (occurrence: CZ)
  Receive Date: 20200429
  Receipt Date: 20200526
  Transmission Date: 20200714
  Serious: Yes (Other)
  Sender: FDA-Public Use
  Company Number: CZ-AUROBINDO-AUR-APL-2020-020694

PATIENT
  Age: 73 Year
  Sex: Male

DRUGS (7)
  1. RIVAROXABAN [Suspect]
     Active Substance: RIVAROXABAN
     Indication: ANTICOAGULANT THERAPY
     Dosage: UNK
     Route: 065
  2. CLOPIDOGREL [Suspect]
     Active Substance: CLOPIDOGREL BISULFATE
     Indication: ANTICOAGULANT THERAPY
     Dosage: THE TARGET INR WAS 2.5-3.
     Route: 065
  3. WARFARIN [Suspect]
     Active Substance: WARFARIN
     Dosage: EFFECTIVE WARFARINISATION WAS SET UP AIMING FOR AN INR BETWEEN 2-2.5
     Route: 065
  4. ACETYLSALICYLIC ACID [Suspect]
     Active Substance: ASPIRIN
     Indication: ANTICOAGULANT THERAPY
     Dosage: UNK
     Route: 065
  5. WARFARIN [Suspect]
     Active Substance: WARFARIN
     Indication: ANTICOAGULANT THERAPY
     Dosage: THE TARGET INR WAS INCREASED TO 2.5-3.
     Route: 065
     Dates: start: 2009
  6. CLOPIDOGREL [Suspect]
     Active Substance: CLOPIDOGREL BISULFATE
     Indication: THROMBOSIS PROPHYLAXIS
     Dosage: UNK
     Route: 065
  7. WARFARIN [Suspect]
     Active Substance: WARFARIN
     Indication: ATRIAL FIBRILLATION
     Dosage: UNK (SINCE 2009)
     Route: 065
     Dates: start: 2009

REACTIONS (7)
  - Liver disorder [Unknown]
  - Atrial thrombosis [Recovering/Resolving]
  - Therapeutic product effect incomplete [Unknown]
  - Epistaxis [Unknown]
  - Off label use [Unknown]
  - Pruritus [Unknown]
  - Subcutaneous haematoma [Unknown]
